FAERS Safety Report 13967509 (Version 2)
Quarter: 2017Q4

REPORT INFORMATION
  Report Type: Report from Study
  Country: GB (occurrence: GB)
  Receive Date: 20170914
  Receipt Date: 20171106
  Transmission Date: 20180320
  Serious: Yes (Hospitalization)
  Sender: FDA-Public Use
  Company Number: GB-ROCHE-1990166

PATIENT
  Sex: Male

DRUGS (1)
  1. ROACTEMRA [Suspect]
     Active Substance: TOCILIZUMAB
     Indication: RHEUMATOID ARTHRITIS
     Route: 058
     Dates: start: 20170808

REACTIONS (6)
  - Hypotension [Unknown]
  - Loss of consciousness [Unknown]
  - Nasopharyngitis [Unknown]
  - Food poisoning [Unknown]
  - Gastric infection [Unknown]
  - Diarrhoea [Unknown]
